FAERS Safety Report 9417533 (Version 1)
Quarter: 2013Q3

REPORT INFORMATION
  Report Type: Spontaneous
  Country: US (occurrence: None)
  Receive Date: 20130722
  Receipt Date: 20130722
  Transmission Date: 20140515
  Serious: Yes (Other)
  Sender: FDA-Public Use
  Company Number: None

PATIENT
  Age: 54 None
  Sex: Female
  Weight: 72.58 kg

DRUGS (1)
  1. LYRICA [Suspect]
     Indication: FIBROMYALGIA
     Route: 048
     Dates: start: 20130320, end: 20130620

REACTIONS (4)
  - Neuralgia [None]
  - Somnolence [None]
  - No reaction on previous exposure to drug [None]
  - Product formulation issue [None]
